FAERS Safety Report 21913368 (Version 2)
Quarter: 2023Q1

REPORT INFORMATION
  Report Type: Spontaneous
  Country: CA (occurrence: CA)
  Receive Date: 20230125
  Receipt Date: 20230207
  Transmission Date: 20230418
  Serious: No
  Sender: FDA-Public Use
  Company Number: CA-INCYTE CORPORATION-2023IN000716

PATIENT

DRUGS (1)
  1. PEMAZYRE [Suspect]
     Active Substance: PEMIGATINIB
     Indication: Sarcoma
     Dosage: UNK
     Route: 065
     Dates: start: 20230120

REACTIONS (1)
  - Off label use [Unknown]
